FAERS Safety Report 8952583 (Version 1)
Quarter: 2012Q4

REPORT INFORMATION
  Report Type: 
  Country: US (occurrence: US)
  Receive Date: 20121205
  Receipt Date: 20121205
  Transmission Date: 20130627
  Serious: No
  Sender: FDA-Public Use
  Company Number: US-ASTRAZENECA-2012SE87489

PATIENT
  Age: 81 Year
  Sex: Male
  Weight: 90.7 kg

DRUGS (9)
  1. SYMBICORT [Suspect]
     Indication: BRONCHITIS CHRONIC
     Dosage: 160 UG 2 PUFFS BID
     Route: 055
     Dates: start: 20121022, end: 20121112
  2. SYMBICORT [Suspect]
     Indication: PULMONARY FIBROSIS
     Dosage: 160 UG 2 PUFFS BID
     Route: 055
     Dates: start: 20121022, end: 20121112
  3. SYNTHROID [Concomitant]
     Indication: THYROID HORMONE REPLACEMENT THERAPY
  4. LASIX [Concomitant]
     Indication: OEDEMA PERIPHERAL
  5. PREVACID OTC [Concomitant]
     Indication: GASTROOESOPHAGEAL REFLUX DISEASE
  6. GABAPENTIN [Concomitant]
     Indication: NEUROPATHY PERIPHERAL
  7. NAC 600 [Concomitant]
     Indication: PULMONARY FIBROSIS
  8. LANTUS [Concomitant]
     Indication: DIABETES MELLITUS
  9. HUMALOG [Concomitant]
     Indication: DIABETES MELLITUS

REACTIONS (2)
  - Pain in extremity [Recovered/Resolved]
  - Paraesthesia [Recovered/Resolved]
